FAERS Safety Report 9498976 (Version 2)
Quarter: 2013Q3

REPORT INFORMATION
  Report Type: Spontaneous
  Country: GB (occurrence: GB)
  Receive Date: 20130904
  Receipt Date: 20130910
  Transmission Date: 20140515
  Serious: Yes (Other)
  Sender: FDA-Public Use
  Company Number: GB-ABBOTT-13P-167-1142411-00

PATIENT
  Sex: Female

DRUGS (13)
  1. NORVIR [Suspect]
     Indication: HIV INFECTION
     Route: 065
  2. NORVIR [Suspect]
     Route: 065
  3. INTELENCE [Suspect]
     Indication: PRODUCT USED FOR UNKNOWN INDICATION
     Route: 065
  4. INTELENCE [Suspect]
     Route: 065
  5. INTELENCE [Suspect]
     Route: 065
  6. PREZISTA [Suspect]
     Indication: HIV INFECTION
     Route: 065
  7. ISENTRESS [Suspect]
     Indication: HIV INFECTION
     Route: 065
  8. ISENTRESS [Suspect]
     Route: 065
  9. APTIVUS [Suspect]
     Indication: HIV INFECTION
     Route: 065
  10. TRUVADA [Suspect]
     Indication: HIV INFECTION
  11. ZIDOVUDINE [Concomitant]
     Indication: PRODUCT USED FOR UNKNOWN INDICATION
     Dosage: DOSAGE FORM UNSPECIFIED
  12. PREDNISOLONE [Concomitant]
     Indication: PRODUCT USED FOR UNKNOWN INDICATION
     Dosage: DOSAGE FORM UNSPECIFIED
  13. NOVORAPID [Concomitant]
     Indication: GESTATIONAL DIABETES
     Dosage: DOSAGE FORM UNSPECIFIED

REACTIONS (1)
  - Gestational diabetes [Unknown]
